FAERS Safety Report 20786587 (Version 1)
Quarter: 2022Q2

REPORT INFORMATION
  Report Type: Spontaneous
  Country: US (occurrence: US)
  Receive Date: 20220505
  Receipt Date: 20220505
  Transmission Date: 20220721
  Serious: Yes (Other)
  Sender: FDA-Public Use
  Company Number: US-APOTEX-2022AP006593

PATIENT

DRUGS (1)
  1. FLUTICASONE PROPIONATE [Suspect]
     Active Substance: FLUTICASONE PROPIONATE
     Indication: Product used for unknown indication
     Dosage: UNK
     Route: 045

REACTIONS (10)
  - Nasal candidiasis [Unknown]
  - Total lung capacity decreased [Unknown]
  - Nasal disorder [Unknown]
  - Headache [Unknown]
  - Cough [Unknown]
  - Epistaxis [Unknown]
  - Product odour abnormal [Unknown]
  - Product taste abnormal [Unknown]
  - Impaired healing [Unknown]
  - Oropharyngeal candidiasis [Unknown]
